FAERS Safety Report 8068409-5 (Version None)
Quarter: 2012Q1

REPORT INFORMATION
  Report Type: 
  Country: None (occurrence: None)
  Receive Date: 20120124
  Receipt Date: 20111021
  Transmission Date: 20120608
  Serious: No
  Sender: FDA-Public Use
  Company Number: US-AMGEN-USASP2011054654

PATIENT
  Age: 89 Year
  Sex: Female

DRUGS (4)
  1. ASPIRIN [Concomitant]
  2. PROCARDIA [Concomitant]
  3. LIPITOR [Concomitant]
  4. PROLIA [Suspect]
     Indication: OSTEOPOROSIS POSTMENOPAUSAL
     Dosage: 60 MG, Q6MO
     Dates: start: 20111017

REACTIONS (3)
  - JAW DISORDER [None]
  - LOCAL SWELLING [None]
  - TENDERNESS [None]
